FAERS Safety Report 5588119-3 (Version None)
Quarter: 2008Q1

REPORT INFORMATION
  Report Type: 
  Country: None (occurrence: None)
  Receive Date: 20080108
  Receipt Date: 20071224
  Transmission Date: 20080703
  Serious: Yes (Hospitalization)
  Sender: FDA-Public Use
  Company Number: ADE2007-0089

PATIENT
  Age: 42 Year
  Sex: Female

DRUGS (3)
  1. CITALOPRAM HYDROBROMIDE [Suspect]
     Indication: BIPOLAR DISORDER
     Dosage: 40 MG UNK PO
     Route: 048
  2. QUETIAPINE FUMARATE [Suspect]
     Indication: BIPOLAR DISORDER
     Dosage: 800 MG UNK PO, 1000 MG, PO
     Route: 048
  3. ALPRAZOLAM [Concomitant]

REACTIONS (9)
  - AGITATION [None]
  - BLOOD CREATINE PHOSPHOKINASE INCREASED [None]
  - DEHYDRATION [None]
  - DELIRIUM [None]
  - HYPERREFLEXIA [None]
  - ILL-DEFINED DISORDER [None]
  - MUSCLE RIGIDITY [None]
  - SEROTONIN SYNDROME [None]
  - URINARY INCONTINENCE [None]
